FAERS Safety Report 18763437 (Version 1)
Quarter: 2021Q1

REPORT INFORMATION
  Report Type: Spontaneous
  Country: ES (occurrence: ES)
  Receive Date: 20210120
  Receipt Date: 20210120
  Transmission Date: 20210419
  Serious: Yes (Life-Threatening, Hospitalization, Other)
  Sender: FDA-Public Use
  Company Number: ES-LUPIN PHARMACEUTICALS INC.-2020-11781

PATIENT
  Age: 10 Year
  Sex: Male

DRUGS (1)
  1. LAMOTRIGINE. [Suspect]
     Active Substance: LAMOTRIGINE
     Indication: EPILEPSY
     Dosage: 4 MILLIGRAM/KILOGRAM, QD
     Route: 065

REACTIONS (2)
  - Haemodynamic instability [Recovering/Resolving]
  - Toxic epidermal necrolysis [Recovering/Resolving]
